FAERS Safety Report 14242036 (Version 1)
Quarter: 2017Q4

REPORT INFORMATION
  Report Type: Spontaneous
  Country: US (occurrence: US)
  Receive Date: 20171201
  Receipt Date: 20171201
  Transmission Date: 20180321
  Serious: Yes (Other)
  Sender: FDA-Public Use
  Company Number: US-TEVA-2017-US-829211

PATIENT
  Age: 79 Year
  Sex: Male
  Weight: 124.72 kg

DRUGS (8)
  1. ASA [Concomitant]
     Active Substance: ASPIRIN
  2. LASIX [Concomitant]
     Active Substance: FUROSEMIDE
  3. DIOVOL [Concomitant]
  4. RLX030 VS PLACEBO [Concomitant]
     Route: 042
     Dates: start: 20140514, end: 20140516
  5. ZOLOFT [Concomitant]
     Active Substance: SERTRALINE HYDROCHLORIDE
  6. FLOMAX [Concomitant]
     Active Substance: TAMSULOSIN HYDROCHLORIDE
  7. BETAPACE [Concomitant]
     Active Substance: SOTALOL HYDROCHLORIDE
  8. DIAMOX SEQUELS [Suspect]
     Active Substance: ACETAZOLAMIDE
     Dosage: 500 MILLIGRAM DAILY;
     Dates: start: 20140514

REACTIONS (1)
  - Hypercapnia [Recovered/Resolved]

NARRATIVE: CASE EVENT DATE: 20140518
